FAERS Safety Report 6470131-3 (Version None)
Quarter: 2009Q4

REPORT INFORMATION
  Report Type: 
  Country: None (occurrence: None)
  Receive Date: 20091203
  Receipt Date: 20071211
  Transmission Date: 20100525
  Serious: Yes (Other)
  Sender: FDA-Public Use
  Company Number: TR-ELI_LILLY_AND_COMPANY-TR200712004844

PATIENT
  Sex: Male
  Weight: 80 kg

DRUGS (3)
  1. HUMULIN N [Suspect]
     Indication: TYPE 2 DIABETES MELLITUS
     Dosage: 25 U, EACH MORNING
     Route: 058
     Dates: start: 20010101
  2. HUMULIN N [Suspect]
     Dosage: 27 U, EACH EVENING
     Route: 058
     Dates: start: 20010101
  3. TARKA [Concomitant]
     Indication: HYPERTENSION
     Dosage: UNK, EACH MORNING
     Route: 048
     Dates: start: 19970101

REACTIONS (1)
  - VASCULAR GRAFT [None]
